FAERS Safety Report 9620074 (Version 2)
Quarter: 2013Q4

REPORT INFORMATION
  Report Type: Spontaneous
  Country: GB (occurrence: GB)
  Receive Date: 20131014
  Receipt Date: 20131014
  Transmission Date: 20140711
  Serious: Yes (Life-Threatening)
  Sender: FDA-Public Use
  Company Number: GB-ABBVIE-06P-167-0350023-00

PATIENT
  Age: 40 Year
  Sex: Female

DRUGS (4)
  1. HUMIRA [Suspect]
     Indication: INFERTILITY
     Dosage: GIVEN SINGLE DOSE
     Route: 058
     Dates: start: 20060125, end: 20060125
  2. HUMIRA [Suspect]
     Indication: SJOGREN^S SYNDROME
  3. AMOXICILLIN [Concomitant]
     Indication: SINUSITIS
     Route: 048
     Dates: start: 20060704, end: 20060711
  4. BETAMETHASONE [Concomitant]
     Indication: ORAL PAIN
     Route: 048
     Dates: start: 20060210

REACTIONS (1)
  - Squamous cell carcinoma [Not Recovered/Not Resolved]
